FAERS Safety Report 6226811-8 (Version None)
Quarter: 2009Q2

REPORT INFORMATION
  Report Type: 
  Country: None (occurrence: None)
  Receive Date: 20090612
  Receipt Date: 20090521
  Transmission Date: 20091009
  Serious: No
  Sender: FDA-Public Use
  Company Number: US-ABBOTT-09P-163-0575464-00

PATIENT
  Sex: Female
  Weight: 113.95 kg

DRUGS (17)
  1. HUMIRA [Suspect]
     Indication: RHEUMATOID ARTHRITIS
     Route: 058
     Dates: start: 20090219
  2. AMBIEN [Concomitant]
     Indication: INSOMNIA
  3. CADUET [Concomitant]
     Indication: BLOOD CHOLESTEROL INCREASED
  4. CADUET [Concomitant]
     Indication: HYPERTENSION
  5. FOLIC ACID [Concomitant]
     Indication: RHEUMATOID ARTHRITIS
  6. GLIPIZIDE [Concomitant]
     Indication: DIABETES MELLITUS
  7. LONOX [Concomitant]
     Indication: DRUG USE FOR UNKNOWN INDICATION
  8. LOPRESSOR [Concomitant]
     Indication: HYPERTENSION
  9. METHOTREXATE [Concomitant]
     Indication: RHEUMATOID ARTHRITIS
  10. MOBIC [Concomitant]
     Indication: PAIN
  11. NEURONTIN [Concomitant]
     Indication: PAIN
  12. NEXIUM [Concomitant]
     Indication: GASTROOESOPHAGEAL REFLUX DISEASE
  13. PLACQUINEL [Concomitant]
     Indication: RHEUMATOID ARTHRITIS
  14. PLAVIX [Concomitant]
     Indication: CORONARY ARTERIAL STENT INSERTION
  15. PREDNISONE [Concomitant]
     Indication: RHEUMATOID ARTHRITIS
  16. SOLU-MEDROL [Concomitant]
     Indication: RHEUMATOID ARTHRITIS
  17. ULTRAM [Concomitant]
     Indication: PAIN

REACTIONS (1)
  - PAIN [None]
